FAERS Safety Report 15028386 (Version 1)
Quarter: 2018Q2

REPORT INFORMATION
  Report Type: Report from Study
  Country: FR (occurrence: FR)
  Receive Date: 20180619
  Receipt Date: 20180619
  Transmission Date: 20180711
  Serious: Yes (Death, Hospitalization)
  Sender: FDA-Public Use
  Company Number: FR-PFIZER INC-2018168961

PATIENT
  Age: 48 Year
  Sex: Female

DRUGS (6)
  1. LEVOLEUCOVORIN CALCIUM. [Suspect]
     Active Substance: LEVOLEUCOVORIN CALCIUM
     Indication: COLORECTAL CANCER METASTATIC
     Dosage: 282 MG, CYCLIC
     Route: 041
     Dates: start: 20151002, end: 20151002
  2. FLUOROURACIL. [Suspect]
     Active Substance: FLUOROURACIL
     Indication: COLORECTAL CANCER METASTATIC
     Dosage: 1700 MG, CYCLIC
     Route: 041
     Dates: start: 20151002, end: 20151002
  3. IRINOTECAN HCL [Suspect]
     Active Substance: IRINOTECAN HYDROCHLORIDE
     Indication: COLORECTAL CANCER METASTATIC
     Dosage: 200 MG, CYCLIC
     Route: 041
     Dates: start: 20151002, end: 20151002
  4. PRIMPERAN [Concomitant]
     Active Substance: METOCLOPRAMIDE HYDROCHLORIDE
  5. FLUOROURACIL. [Suspect]
     Active Substance: FLUOROURACIL
     Dosage: 560 MG, CYCLIC
     Route: 040
     Dates: start: 20151002, end: 20151002
  6. POLYSILANE /00159501/ [Concomitant]
     Dosage: UNK
     Route: 065
     Dates: start: 20151002

REACTIONS (7)
  - Melaena [Recovered/Resolved]
  - Asthenia [Not Recovered/Not Resolved]
  - Oedema peripheral [Not Recovered/Not Resolved]
  - Venoocclusive disease [Not Recovered/Not Resolved]
  - Diarrhoea [Recovered/Resolved]
  - Vomiting [Recovered/Resolved]
  - Sepsis [Fatal]

NARRATIVE: CASE EVENT DATE: 20151003
